FAERS Safety Report 6161019-6 (Version None)
Quarter: 2009Q2

REPORT INFORMATION
  Report Type: 
  Country: None (occurrence: None)
  Receive Date: 20090420
  Receipt Date: 20090408
  Transmission Date: 20091009
  Serious: Yes (Other)
  Sender: FDA-Public Use
  Company Number: DE-PFIZER INC-2009195648

PATIENT

DRUGS (2)
  1. ZELDOX [Suspect]
     Dosage: 40MG, EVERY DAY
     Route: 048
  2. CITALOPRAM [Concomitant]
     Indication: DEPRESSION
     Dosage: 20 MG, EVERY DAY

REACTIONS (2)
  - ANXIETY DISORDER [None]
  - PSYCHOTIC DISORDER [None]
